FAERS Safety Report 4903662-5 (Version None)
Quarter: 2006Q1

REPORT INFORMATION
  Report Type: 
  Country: None (occurrence: None)
  Receive Date: 20060203
  Receipt Date: 20060125
  Transmission Date: 20060701
  Serious: No
  Sender: FDA-Public Use
  Company Number: 06H-163-0304682

PATIENT

DRUGS (1)
  1. VANCOMYCIN HCL [Suspect]
     Indication: ANTIBIOTIC PROPHYLAXIS

REACTIONS (1)
  - SYSTEMIC CANDIDA [None]
